FAERS Safety Report 7221574-1 (Version None)
Quarter: 2011Q1

REPORT INFORMATION
  Report Type: 
  Country: None (occurrence: None)
  Receive Date: 20110112
  Receipt Date: 20101231
  Transmission Date: 20110831
  Serious: Yes (Life-Threatening, Hospitalization)
  Sender: FDA-Public Use
  Company Number: FR-PFIZER INC-2010041711

PATIENT
  Age: 44 Year
  Sex: Female
  Weight: 90 kg

DRUGS (9)
  1. MEPRONIZINE [Suspect]
     Indication: MENTAL DISORDER
     Dosage: UNK
     Route: 048
     Dates: end: 20090124
  2. TERCIAN [Suspect]
     Dosage: UNK
     Dates: start: 20090223, end: 20090303
  3. REMICADE [Concomitant]
     Indication: RHEUMATOID ARTHRITIS
     Dosage: 4 UNK, UNK
     Route: 042
     Dates: start: 20090119
  4. ATARAX [Suspect]
     Indication: MENTAL DISORDER
     Dosage: UNK
     Route: 048
     Dates: end: 20090124
  5. STILNOX [Concomitant]
     Route: 048
  6. METHOTREXATE [Concomitant]
     Indication: RHEUMATOID ARTHRITIS
     Dosage: IRREGULAR INTAKE
     Dates: start: 20040101
  7. EFFEXOR [Suspect]
     Indication: MENTAL DISORDER
     Dosage: UNK
     Route: 048
     Dates: end: 20090124
  8. TERCIAN [Suspect]
     Indication: MENTAL DISORDER
     Dosage: 100 MG, UNK
     Route: 048
     Dates: end: 20090124
  9. LOXAPAC [Suspect]
     Indication: MENTAL DISORDER
     Dosage: UNK
     Route: 048
     Dates: start: 20090201, end: 20090223

REACTIONS (6)
  - BLOOD CREATINE PHOSPHOKINASE INCREASED [None]
  - DRUG WITHDRAWAL SYNDROME [None]
  - ASCITES [None]
  - COLITIS ISCHAEMIC [None]
  - RENAL FAILURE [None]
  - SEPTIC SHOCK [None]
